FAERS Safety Report 17525938 (Version 2)
Quarter: 2020Q4

REPORT INFORMATION
  Report Type: Report from Study
  Country: JP (occurrence: JP)
  Receive Date: 20200311
  Receipt Date: 20201117
  Transmission Date: 20210113
  Serious: Yes (Other)
  Sender: FDA-Public Use
  Company Number: JP-UCBSA-2020009574

PATIENT
  Age: 77 Year
  Sex: Female
  Weight: 42.9 kg

DRUGS (13)
  1. FENTANYL CITRATE. [Concomitant]
     Active Substance: FENTANYL CITRATE
     Indication: SEDATION
     Dosage: 23.4 ML DAILY
     Route: 042
     Dates: start: 20191208, end: 20191210
  2. EFFORTIL [Concomitant]
     Active Substance: ETILEFRINE HYDROCHLORIDE
     Indication: SEDATION
     Dosage: 1 ML DAILY
     Route: 042
     Dates: start: 20191209, end: 20191209
  3. LACOSAMIDE. [Suspect]
     Active Substance: LACOSAMIDE
     Indication: STATUS EPILEPTICUS
     Dosage: 50 MILLIGRAM, 2X/DAY (BID)
     Route: 041
     Dates: start: 20191208, end: 20191211
  4. VIMPAT [Concomitant]
     Active Substance: LACOSAMIDE
     Dosage: 200 MG DAILY
     Route: 048
     Dates: start: 20191216
  5. PRECEDEX [Concomitant]
     Active Substance: DEXMEDETOMIDINE HYDROCHLORIDE
     Indication: SEDATION
     Dosage: 50 ML DAILY
     Route: 042
     Dates: start: 20191208, end: 20191210
  6. DIPRIVAN [Concomitant]
     Active Substance: PROPOFOL
     Indication: SEDATION
     Dosage: 245 ML DAILY
     Route: 042
     Dates: start: 20191208, end: 20191210
  7. CERCINE [Concomitant]
     Active Substance: DIAZEPAM
     Indication: GENERALISED TONIC-CLONIC SEIZURE
  8. LACOSAMIDE. [Suspect]
     Active Substance: LACOSAMIDE
     Indication: OFF LABEL USE
  9. VIMPAT [Concomitant]
     Active Substance: LACOSAMIDE
     Indication: PRODUCT USED FOR UNKNOWN INDICATION
     Dosage: 100 MG DAILY
     Route: 048
     Dates: start: 20191210, end: 20191215
  10. LACOSAMIDE. [Suspect]
     Active Substance: LACOSAMIDE
     Indication: FOCAL DYSCOGNITIVE SEIZURES
  11. CERCINE [Concomitant]
     Active Substance: DIAZEPAM
     Indication: SEDATION
     Dosage: 15 MG DAILY
     Route: 042
     Dates: start: 20191208, end: 20191208
  12. E KEPPRA [Concomitant]
     Active Substance: LEVETIRACETAM
     Indication: PRODUCT USED FOR UNKNOWN INDICATION
     Dosage: 1000 MG DAILY
     Route: 048
     Dates: start: 20170813, end: 20200116
  13. ROCURONIUM BROMIDE. [Concomitant]
     Active Substance: ROCURONIUM BROMIDE
     Indication: SEDATION
     Dosage: 7 ML DAILY
     Route: 042
     Dates: start: 20191208, end: 20191208

REACTIONS (2)
  - Blood creatine phosphokinase increased [Recovered/Resolved]
  - Off label use [Unknown]

NARRATIVE: CASE EVENT DATE: 20191208
